FAERS Safety Report 12844305 (Version 1)
Quarter: 2016Q4

REPORT INFORMATION
  Report Type: Spontaneous
  Country: US (occurrence: US)
  Receive Date: 20161013
  Receipt Date: 20161013
  Transmission Date: 20170207
  Serious: Yes (Other)
  Sender: FDA-Public Use
  Company Number: US-GLAXOSMITHKLINE-US2016149841

PATIENT
  Age: 81 Year
  Sex: Female

DRUGS (2)
  1. GAS-X EXTRA STRENGTH [Suspect]
     Active Substance: DIMETHICONE
     Indication: ABDOMINAL DISTENSION
  2. GAS-X EXTRA STRENGTH [Suspect]
     Active Substance: DIMETHICONE
     Indication: FLATULENCE
     Dosage: 4 DF, PRN

REACTIONS (7)
  - Abasia [Not Recovered/Not Resolved]
  - Arthropathy [Not Recovered/Not Resolved]
  - Therapeutic response unexpected [Unknown]
  - Weight increased [Unknown]
  - Mobility decreased [Not Recovered/Not Resolved]
  - Activities of daily living impaired [Unknown]
  - Nervous system disorder [Not Recovered/Not Resolved]
